FAERS Safety Report 15588157 (Version 4)
Quarter: 2019Q1

REPORT INFORMATION
  Report Type: Report from Study
  Country: US (occurrence: US)
  Receive Date: 20181105
  Receipt Date: 20190108
  Transmission Date: 20190417
  Serious: Yes (Hospitalization, Other)
  Sender: FDA-Public Use
  Company Number: US-SHIRE-US201842416

PATIENT
  Sex: Female
  Weight: 66 kg

DRUGS (1)
  1. GATTEX [Suspect]
     Active Substance: TEDUGLUTIDE\WATER
     Indication: SHORT-BOWEL SYNDROME
     Dosage: 0.335 ML, 1X/DAY:QD
     Route: 058
     Dates: start: 20160817, end: 20181116

REACTIONS (5)
  - Malnutrition [Unknown]
  - Sepsis [Unknown]
  - Dehydration [Unknown]
  - Weight decreased [Unknown]
  - Diarrhoea [Unknown]
